FAERS Safety Report 7812871-7 (Version None)
Quarter: 2011Q4

REPORT INFORMATION
  Report Type: 
  Country: None (occurrence: None)
  Receive Date: 20111011
  Receipt Date: 20111007
  Transmission Date: 20120403
  Serious: Yes (Other)
  Sender: FDA-Public Use
  Company Number: 2011SP014647

PATIENT
  Age: 29 Year
  Sex: Female
  Weight: 57 kg

DRUGS (2)
  1. MATERNA [Concomitant]
  2. DESOGESTREL AND ETHINYL ESTRADIOL [Suspect]
     Indication: CONTRACEPTION
     Dosage: PO
     Route: 048
     Dates: start: 20020101, end: 20110314

REACTIONS (4)
  - PREGNANCY ON ORAL CONTRACEPTIVE [None]
  - METRORRHAGIA [None]
  - MATERNAL EXPOSURE DURING PREGNANCY [None]
  - URINARY TRACT INFECTION [None]
